FAERS Safety Report 24885265 (Version 2)
Quarter: 2025Q1

REPORT INFORMATION
  Report Type: Spontaneous
  Country: US (occurrence: US)
  Receive Date: 20250124
  Receipt Date: 20250207
  Transmission Date: 20250408
  Serious: Yes (Hospitalization)
  Sender: LUNDBECK
  Company Number: US-LUNDBECK-DKLU4009532

PATIENT

DRUGS (44)
  1. VYEPTI [Suspect]
     Active Substance: EPTINEZUMAB-JJMR
     Indication: Migraine
     Dosage: 100 MILLIGRAM
     Route: 041
     Dates: start: 20240104, end: 20240403
  2. VYEPTI [Suspect]
     Active Substance: EPTINEZUMAB-JJMR
     Dosage: 300 MILLIGRAM
     Route: 041
     Dates: start: 20240404, end: 20250129
  3. ESCITALOPRAM OXALATE [Concomitant]
     Active Substance: ESCITALOPRAM OXALATE
     Indication: Product used for unknown indication
     Dosage: 20 MILLIGRAM
  4. ADDERALL [Concomitant]
     Active Substance: AMPHETAMINE ASPARTATE\AMPHETAMINE SULFATE\DEXTROAMPHETAMINE SACCHARATE\DEXTROAMPHETAMINE SULFATE
     Indication: Product used for unknown indication
     Dosage: 12.5 MILLIGRAM
     Route: 048
  5. DEXTROAMPHETAMINE HYDROCHLORIDE [Concomitant]
     Active Substance: DEXTROAMPHETAMINE HYDROCHLORIDE
     Indication: Product used for unknown indication
     Dosage: 1 DOSAGE FORM
     Route: 048
  6. ARIPIPRAZOLE [Concomitant]
     Active Substance: ARIPIPRAZOLE
     Indication: Product used for unknown indication
     Dosage: 1 DOSAGE FORM
     Route: 048
  7. BACLOFEN [Concomitant]
     Active Substance: BACLOFEN
     Indication: Product used for unknown indication
     Dosage: 10 MILLIGRAM
     Route: 048
  8. BUPRENORPHINE HYDROCHLORIDE [Concomitant]
     Active Substance: BUPRENORPHINE HYDROCHLORIDE
     Indication: Pain
     Dosage: 8 MILLIGRAM
     Route: 060
  9. BUSPIRONE HCL [Concomitant]
     Active Substance: BUSPIRONE HYDROCHLORIDE
     Indication: Product used for unknown indication
     Dosage: 10 MILLIGRAM
  10. BUSPIRONE HCL [Concomitant]
     Active Substance: BUSPIRONE HYDROCHLORIDE
     Dosage: 10 MILLIGRAM
     Route: 048
  11. CARDURA [Concomitant]
     Active Substance: DOXAZOSIN MESYLATE
     Indication: Product used for unknown indication
     Dosage: 4 MILLIGRAM
     Route: 048
  12. CLOBETASOL PROPIONATE [Concomitant]
     Active Substance: CLOBETASOL PROPIONATE
     Indication: Product used for unknown indication
     Dosage: 0.05 % PERCENT
     Route: 061
  13. DILAUDID [Concomitant]
     Active Substance: HYDROMORPHONE HYDROCHLORIDE
     Indication: Pain
     Route: 048
  14. DIPHENHYDRAMINE HYDROCHLORIDE [Concomitant]
     Active Substance: DIPHENHYDRAMINE HYDROCHLORIDE
     Indication: Product used for unknown indication
     Route: 042
  15. DIPHENHYDRAMINE HYDROCHLORIDE [Concomitant]
     Active Substance: DIPHENHYDRAMINE HYDROCHLORIDE
     Indication: Nausea
  16. DOXAZOSIN MESYLATE [Concomitant]
     Active Substance: DOXAZOSIN MESYLATE
     Indication: Product used for unknown indication
     Dosage: 1 DOSAGE FORM
  17. DULERA [Concomitant]
     Active Substance: FORMOTEROL FUMARATE DIHYDRATE\MOMETASONE FUROATE
     Indication: Dyspnoea
  18. EPIPEN [Concomitant]
     Active Substance: EPINEPHRINE
     Indication: Hypersensitivity
  19. FAMOTIDINE [Concomitant]
     Active Substance: FAMOTIDINE
     Indication: Product used for unknown indication
     Dosage: 50 MILLILITRE
     Route: 048
  20. HEATHER [CALLUNA VULGARIS] [Concomitant]
     Indication: Product used for unknown indication
     Dosage: 0.35 MILLIGRAM
     Route: 048
  21. ACETAMINOPHEN\HYDROCODONE [Concomitant]
     Active Substance: ACETAMINOPHEN\HYDROCODONE
     Indication: Pain
  22. HYDROXYZINE HYDROCHLORIDE [Concomitant]
     Active Substance: HYDROXYZINE HYDROCHLORIDE
     Indication: Pruritus
     Dosage: 1 DOSAGE FORM
  23. HYOSCYAMINE SULFATE [Concomitant]
     Active Substance: HYOSCYAMINE SULFATE
     Indication: Muscle spasms
     Dosage: 1 DOSAGE FORM
     Route: 060
  24. ALBUTEROL\IPRATROPIUM [Concomitant]
     Active Substance: ALBUTEROL\IPRATROPIUM
     Indication: Asthma
     Dosage: 3 MILLILITRE
  25. KETOROLAC TROMETHAMINE [Concomitant]
     Active Substance: KETOROLAC TROMETHAMINE
     Indication: Pain
  26. LIDOCAINE 5% EXTRA [Concomitant]
     Indication: Product used for unknown indication
  27. LIDOCAINE HYDROCHLORIDE [Concomitant]
     Active Substance: LIDOCAINE HYDROCHLORIDE
     Indication: Pain
  28. LIDOCAINE HYDROCHLORIDE [Concomitant]
     Active Substance: LIDOCAINE HYDROCHLORIDE
     Dosage: PRN
     Route: 061
  29. MIDODRINE HYDROCHLORIDE [Concomitant]
     Active Substance: MIDODRINE HYDROCHLORIDE
     Indication: Product used for unknown indication
     Dosage: 1 DOSAGE FORM
  30. MONTELUKAST SODIUM [Concomitant]
     Active Substance: MONTELUKAST SODIUM
     Indication: Product used for unknown indication
     Dosage: 1 DOSAGE FORM
     Route: 048
  31. NALOXONE HCL [Concomitant]
     Active Substance: NALOXONE HYDROCHLORIDE
     Indication: Overdose
     Route: 045
  32. NORETHINDRONE [Concomitant]
     Active Substance: NORETHINDRONE
     Indication: Product used for unknown indication
     Dosage: 1 DOSAGE FORM
     Route: 048
  33. ONDANSETRON HYDROCHLORIDE [Concomitant]
     Active Substance: ONDANSETRON HYDROCHLORIDE
     Indication: Nausea
     Dosage: 8 MILLIGRAM
  34. OXYBUTYNIN CHLORIDE [Concomitant]
     Active Substance: OXYBUTYNIN CHLORIDE
     Indication: Muscle spasms
     Dosage: 5 MILLILITRE
  35. OXYCODONE HYDROCHLORIDE [Concomitant]
     Active Substance: OXYCODONE HYDROCHLORIDE
     Indication: Pain
     Route: 048
  36. PANTOPRAZOLE SODIUM [Concomitant]
     Active Substance: PANTOPRAZOLE SODIUM
     Indication: Product used for unknown indication
     Dosage: 40 MILLIGRAM
     Route: 042
  37. PREGABALIN [Concomitant]
     Active Substance: PREGABALIN
     Indication: Product used for unknown indication
     Dosage: 6 MILLILITRE
  38. PROCHLORPERAZINE EDISYLATE [Concomitant]
     Active Substance: PROCHLORPERAZINE EDISYLATE
     Indication: Product used for unknown indication
     Dosage: 10 MILLIGRAM
     Route: 042
  39. QUETIAPINE FUMARATE [Concomitant]
     Active Substance: QUETIAPINE FUMARATE
     Indication: Product used for unknown indication
     Dosage: 100 MILLIGRAM
  40. SODIUM CHLORIDE [Concomitant]
     Active Substance: SODIUM CHLORIDE
     Indication: Product used for unknown indication
     Dosage: 50 MILLILITRE
     Route: 042
  41. DEXTROSE\SODIUM CHLORIDE [Concomitant]
     Active Substance: DEXTROSE\SODIUM CHLORIDE
     Indication: Product used for unknown indication
     Dosage: 1500 MILLILITRE
     Route: 042
  42. AMINO ACIDS\CARBOHYDRATES\MINERALS\VITAMINS [Concomitant]
     Active Substance: AMINO ACIDS\CARBOHYDRATES\MINERALS\VITAMINS
     Indication: Product used for unknown indication
     Dosage: 2300 MILLILITRE
     Route: 042
  43. TRAZODONE HCL [Concomitant]
     Active Substance: TRAZODONE HYDROCHLORIDE
     Indication: Product used for unknown indication
     Dosage: 50 MILLIGRAM
     Route: 048
  44. INFUVITE ADULT [Concomitant]
     Active Substance: .ALPHA.-TOCOPHEROL ACETATE\ASCORBIC ACID\BIOTIN\CHOLECALCIFEROL\CYANOCOBALAMIN\DEXPANTHENOL\FOLIC AC
     Indication: Product used for unknown indication
     Dosage: 10 MILLILITRE
     Route: 042

REACTIONS (4)
  - Bacteraemia [Not Recovered/Not Resolved]
  - Muscular weakness [Not Recovered/Not Resolved]
  - Urinary incontinence [Not Recovered/Not Resolved]
  - Blood glucose decreased [Not Recovered/Not Resolved]
